FAERS Safety Report 17844926 (Version 1)
Quarter: 2020Q2

REPORT INFORMATION
  Report Type: Spontaneous
  Country: CZ (occurrence: CZ)
  Receive Date: 20200601
  Receipt Date: 20200601
  Transmission Date: 20200714
  Serious: Yes (Hospitalization, Other)
  Sender: FDA-Public Use
  Company Number: CZ-009507513-2005CZE008764

PATIENT
  Age: 78 Year
  Sex: Female
  Weight: 100 kg

DRUGS (9)
  1. ANOPYRIN [Concomitant]
     Active Substance: ASPIRIN
     Dosage: 100 MILLIGRAM, QD
  2. VALSACOR [Concomitant]
     Active Substance: VALSARTAN
     Dosage: 160 MILLIGRAM, QD
  3. KAPIDIN [Concomitant]
     Active Substance: LERCANIDIPINE HYDROCHLORIDE
     Dosage: 10 MILLIGRAM, QD
  4. CARVESAN [Concomitant]
     Dosage: 6.25 MILLIGRAM, BID
  5. SODIUM CHLORIDE. [Concomitant]
     Active Substance: SODIUM CHLORIDE
     Dosage: 3 GRAM, QD (1 G CPS TID)
  6. SIOFOR [Concomitant]
     Active Substance: METFORMIN HYDROCHLORIDE
     Dosage: 500 MILLIGRAM, QD
  7. HELICID (OMEPRAZOLE) [Concomitant]
     Active Substance: OMEPRAZOLE
     Dosage: 20 MILLIGRAM, BID
  8. FRAXIPARIN [Concomitant]
     Active Substance: NADROPARIN CALCIUM
     Dosage: 0.4 MILLILITER, QD
     Route: 058
  9. KEYTRUDA [Suspect]
     Active Substance: PEMBROLIZUMAB
     Indication: ANGIOSARCOMA
     Dosage: UNK
     Route: 042
     Dates: start: 20190717, end: 20191011

REACTIONS (8)
  - Cerebral small vessel ischaemic disease [Unknown]
  - Malignant neoplasm progression [Unknown]
  - Off label use [Unknown]
  - Hyponatraemia [Unknown]
  - Arteriosclerosis [Unknown]
  - Hypophysitis [Recovered/Resolved]
  - Spinal osteoarthritis [Unknown]
  - Inappropriate antidiuretic hormone secretion [Unknown]

NARRATIVE: CASE EVENT DATE: 2019
